FAERS Safety Report 20876356 (Version 1)
Quarter: 2022Q2

REPORT INFORMATION
  Report Type: Spontaneous
  Country: CL (occurrence: CL)
  Receive Date: 20220526
  Receipt Date: 20220526
  Transmission Date: 20220721
  Serious: Yes (Other)
  Sender: FDA-Public Use
  Company Number: CL-MYLANLABS-2022M1038910

PATIENT
  Age: 50 Year
  Sex: Male

DRUGS (9)
  1. CLOZAPINE [Suspect]
     Active Substance: CLOZAPINE
     Indication: Bipolar disorder
     Dosage: 25 MILLIGRAM, QD
     Route: 048
     Dates: start: 20220502
  2. LEVOTHYROXINE SODIUM [Concomitant]
     Active Substance: LEVOTHYROXINE SODIUM
     Indication: Hypothyroidism
     Dosage: 88 MICROGRAM, QD
     Route: 048
  3. ARIPIPRAZOLE [Concomitant]
     Active Substance: ARIPIPRAZOLE
     Indication: Bipolar disorder
     Dosage: 15 MILLIGRAM, QD
  4. LAMOTRIGINE [Concomitant]
     Active Substance: LAMOTRIGINE
     Indication: Bipolar disorder
     Dosage: 200 MILLIGRAM, QD
     Route: 048
  5. BISOPROLOL [Concomitant]
     Active Substance: BISOPROLOL
     Indication: Hypertension
     Dosage: 5 MILLIGRAM, QD
     Route: 048
  6. Oltan [Concomitant]
     Indication: Hypertension
     Dosage: 20 MILLIGRAM, QD
     Route: 048
  7. XIGDUO XR [Concomitant]
     Active Substance: DAPAGLIFLOZIN PROPANEDIOL\METFORMIN HYDROCHLORIDE
     Dosage: 50/1000 MG, QD
     Route: 048
  8. GIABRI [Concomitant]
     Dosage: 100 MILLIGRAM, QD
     Route: 048
  9. PROPRANOLOL HYDROCHLORIDE [Concomitant]
     Active Substance: PROPRANOLOL HYDROCHLORIDE
     Indication: Parkinsonism
     Dosage: 40 MILLIGRAM, QD
     Route: 048

REACTIONS (3)
  - Bipolar disorder [Unknown]
  - Skin exfoliation [Unknown]
  - Colitis [Recovered/Resolved]

NARRATIVE: CASE EVENT DATE: 20220502
